FAERS Safety Report 7180336-4 (Version None)
Quarter: 2010Q4

REPORT INFORMATION
  Report Type: 
  Country: None (occurrence: None)
  Receive Date: 20101221
  Receipt Date: 20101019
  Transmission Date: 20110411
  Serious: Yes (Death)
  Sender: FDA-Public Use
  Company Number: A0885030A

PATIENT
  Age: 35 Year
  Sex: Female

DRUGS (10)
  1. MEPRON [Suspect]
     Dosage: 1U PER DAY
     Route: 048
     Dates: start: 20101001, end: 20101002
  2. FLUCONAZOLE [Concomitant]
  3. LOPERAMIDE [Concomitant]
  4. MULTI-VITAMIN [Concomitant]
  5. AZITHROMYCIN [Concomitant]
  6. RIFAMPIN [Concomitant]
  7. METRONIDAZOLE [Concomitant]
  8. MYAMBUTOL [Concomitant]
  9. QUESTRAN [Concomitant]
  10. PAIN MEDICATION [Concomitant]

REACTIONS (2)
  - DEATH [None]
  - END STAGE AIDS [None]
